FAERS Safety Report 7872586-6 (Version None)
Quarter: 2011Q4

REPORT INFORMATION
  Report Type: 
  Country: None (occurrence: None)
  Receive Date: 20111030
  Receipt Date: 20110429
  Transmission Date: 20120403
  Serious: No
  Sender: FDA-Public Use
  Company Number: US-AMGEN-USASP2011022417

PATIENT
  Sex: Male

DRUGS (1)
  1. ENBREL [Suspect]
     Indication: POLYARTHRITIS
     Dosage: 50 MG, QWK
     Dates: start: 20020101

REACTIONS (3)
  - TREMOR [None]
  - STRESS AT WORK [None]
  - MUSCLE TWITCHING [None]
